FAERS Safety Report 8421570-2 (Version None)
Quarter: 2012Q2

REPORT INFORMATION
  Report Type: 
  Country: None (occurrence: None)
  Receive Date: 20120323
  Receipt Date: 20111220
  Transmission Date: 20120825
  Serious: Yes (Hospitalization)
  Sender: FDA-Public Use
  Company Number: 163-21880-11122684

PATIENT
  Age: 77 Year
  Sex: Male

DRUGS (7)
  1. OMEGA-3-ACID ETHYL ESTERS (LOVAZA) [Concomitant]
  2. APLENZIN (BUPROPION HYDROCHLORIDE) [Concomitant]
  3. MULTIVITAMIN [Concomitant]
  4. CO Q10 (UBIDECARENONE) [Concomitant]
  5. REVLIMID [Suspect]
     Indication: CHRONIC LYMPHOCYTIC LEUKAEMIA
     Dosage: 5 MG, X 28, PO
     Route: 048
     Dates: start: 20111121
  6. ASPIRIN [Concomitant]
  7. RITUXAN [Concomitant]

REACTIONS (1)
  - BODY TEMPERATURE INCREASED [None]
